FAERS Safety Report 5338592-0 (Version None)
Quarter: 2007Q2

REPORT INFORMATION
  Report Type: 
  Country: None (occurrence: None)
  Receive Date: 20070530
  Receipt Date: 20070524
  Transmission Date: 20071010
  Serious: Yes (Hospitalization)
  Sender: FDA-Public Use
  Company Number: JP-ASTRAZENECA-2007SE01874

PATIENT
  Age: 15575 Day
  Sex: Female
  Weight: 83 kg

DRUGS (12)
  1. BLOPRESS TABLETS 4 [Suspect]
     Indication: HYPERTENSION
     Route: 048
     Dates: start: 20061101
  2. TANATRIL [Concomitant]
     Indication: HYPERTENSION
     Route: 048
  3. LIPITOR [Concomitant]
     Indication: HYPERLIPIDAEMIA
     Route: 048
  4. PLAVIX [Concomitant]
     Indication: ANGINA PECTORIS
     Route: 048
     Dates: start: 20070222, end: 20070227
  5. LAMISIL [Concomitant]
     Route: 065
     Dates: start: 20061030
  6. NOVORAPID [Concomitant]
     Indication: DIABETES MELLITUS
     Dosage: 1) 44 UNITS (MORNING 22, LUNCHTIME 10, EVENING 12)
     Route: 058
  7. URINORM [Concomitant]
     Indication: HYPERURICAEMIA
     Route: 048
     Dates: start: 20070222
  8. CONTOMIN [Concomitant]
     Indication: ANXIETY
     Route: 048
  9. LEXOTAN [Concomitant]
     Indication: ANXIETY
     Route: 048
  10. ROHYPNOL [Concomitant]
     Indication: INSOMNIA
     Route: 048
  11. HALCION [Concomitant]
     Indication: INSOMNIA
     Route: 048
  12. CONSTAN [Concomitant]
     Indication: ANXIETY
     Route: 048

REACTIONS (1)
  - CEREBELLAR INFARCTION [None]
